FAERS Safety Report 5136774-4 (Version None)
Quarter: 2006Q4

REPORT INFORMATION
  Report Type: 
  Country: None (occurrence: None)
  Receive Date: 20061023
  Receipt Date: 20060628
  Transmission Date: 20070319
  Serious: Yes (Other)
  Sender: FDA-Public Use
  Company Number: 2006035807

PATIENT
  Sex: Female

DRUGS (1)
  1. BEXTRA [Suspect]
     Indication: INTERVERTEBRAL DISC DISORDER
     Dosage: (10 MG)
     Dates: start: 20020311, end: 20020320

REACTIONS (1)
  - STEVENS-JOHNSON SYNDROME [None]
